FAERS Safety Report 20299522 (Version 1)
Quarter: 2022Q1

REPORT INFORMATION
  Report Type: Spontaneous
  Country: US (occurrence: None)
  Receive Date: 20220105
  Receipt Date: 20220105
  Transmission Date: 20220424
  Serious: No
  Sender: FDA-Public Use
  Company Number: None

PATIENT
  Age: 57 Year
  Sex: Male

DRUGS (1)
  1. REMICADE [Suspect]
     Active Substance: INFLIXIMAB
     Indication: Crohn^s disease
     Dosage: OTHER FREQUENCY : OTHER; 445 MG AT WEEK 0,2,6?
     Route: 042
     Dates: start: 20211210

REACTIONS (3)
  - Peripheral swelling [None]
  - Generalised oedema [None]
  - Feeding disorder [None]

NARRATIVE: CASE EVENT DATE: 20211224
